FAERS Safety Report 19305655 (Version 1)
Quarter: 2021Q2

REPORT INFORMATION
  Report Type: Spontaneous
  Country: FR (occurrence: FR)
  Receive Date: 20210526
  Receipt Date: 20210526
  Transmission Date: 20210717
  Serious: Yes (Other)
  Sender: FDA-Public Use
  Company Number: FR-TEVA-2021-FR-1914492

PATIENT
  Age: 54 Year
  Sex: Male

DRUGS (11)
  1. CLOZAPINE. [Suspect]
     Active Substance: CLOZAPINE
     Indication: MENTAL DISORDER
     Dosage: 100 MG
     Route: 048
     Dates: start: 2020
  2. ARIPIPRAZOLE. [Interacting]
     Active Substance: ARIPIPRAZOLE
     Indication: MENTAL DISORDER
     Dosage: 10 MG
     Route: 048
     Dates: start: 2020
  3. RAMIPRIL. [Concomitant]
     Active Substance: RAMIPRIL
  4. VALPROATE [Concomitant]
     Active Substance: VALPROIC ACID
  5. ATORVASTATINE [Concomitant]
     Active Substance: ATORVASTATIN
  6. BIPERIDENE [Concomitant]
     Active Substance: BIPERIDEN
  7. ATENOLOL. [Concomitant]
     Active Substance: ATENOLOL
  8. LOXAPINE. [Concomitant]
     Active Substance: LOXAPINE
     Dosage: 125 MG
     Route: 048
     Dates: start: 2020, end: 20201202
  9. AMLODIPINE [Concomitant]
     Active Substance: AMLODIPINE BESYLATE
  10. ALIMEMAZINE [Concomitant]
     Active Substance: TRIMEPRAZINE
     Dosage: 100 MG
     Dates: start: 2020, end: 20201202
  11. LORAZEPAM. [Concomitant]
     Active Substance: LORAZEPAM

REACTIONS (2)
  - Salivary hypersecretion [Not Recovered/Not Resolved]
  - Drug interaction [Unknown]

NARRATIVE: CASE EVENT DATE: 20201202
